FAERS Safety Report 6328813-X (Version None)
Quarter: 2009Q3

REPORT INFORMATION
  Report Type: 
  Country: None (occurrence: None)
  Receive Date: 20090826
  Receipt Date: 20090818
  Transmission Date: 20100115
  Serious: Yes (Other)
  Sender: FDA-Public Use
  Company Number: GB-AMGEN-UK361317

PATIENT
  Age: 10 Month
  Sex: Female

DRUGS (2)
  1. CINACALCET [Suspect]
     Indication: HYPERPARATHYROIDISM SECONDARY
     Route: 065
  2. CALCITONIN [Concomitant]
     Route: 045

REACTIONS (2)
  - BLOOD CALCIUM ABNORMAL [None]
  - DRUG INEFFECTIVE [None]
